FAERS Safety Report 9441908 (Version 2)
Quarter: 2013Q3

REPORT INFORMATION
  Report Type: Spontaneous
  Country: TR (occurrence: TR)
  Receive Date: 20130806
  Receipt Date: 20130814
  Transmission Date: 20140515
  Serious: Yes (Other)
  Sender: FDA-Public Use
  Company Number: TR-RANBAXY-2013RR-71891

PATIENT
  Age: 50 Year
  Sex: Female

DRUGS (8)
  1. ONDANSETRON [Suspect]
     Indication: VOMITING
     Dosage: 8 MG/DAY
     Route: 042
  2. CODEINE [Suspect]
     Indication: ANALGESIC THERAPY
     Dosage: 60 MG/DAY
     Route: 048
  3. PIROXICAM [Suspect]
     Indication: ANALGESIC THERAPY
     Dosage: 20 MG TABLETS/DAY
     Route: 048
  4. OMEPRAZOLE [Suspect]
     Indication: PROPHYLAXIS AGAINST GASTROINTESTINAL ULCER
     Dosage: 40 MG/DAY
     Route: 048
  5. CAMPTOTESIN [Suspect]
     Indication: ADENOCARCINOMA OF COLON
     Dosage: 125 MG/M2
     Route: 065
  6. 5-FLUOROURACIL [Suspect]
     Indication: ADENOCARCINOMA OF COLON
     Dosage: 500 MG/M2
     Route: 065
  7. FOLINIC ACID [Suspect]
     Indication: ADENOCARCINOMA OF COLON
     Dosage: 20 MG/M2
     Route: 065
  8. DEXAMETHASONE [Suspect]
     Indication: ADENOCARCINOMA OF COLON
     Dosage: 16 MG/DAY
     Route: 042

REACTIONS (1)
  - Pancreatitis acute [Recovering/Resolving]
